FAERS Safety Report 25895400 (Version 1)
Quarter: 2025Q4

REPORT INFORMATION
  Report Type: Spontaneous
  Country: EU (occurrence: EU)
  Receive Date: 20251008
  Receipt Date: 20251008
  Transmission Date: 20260118
  Serious: Yes (Other)
  Sender: RANBAXY
  Company Number: EU-SUN PHARMACEUTICAL INDUSTRIES LTD-2025R1-530165

PATIENT
  Age: 74 Year
  Sex: Female

DRUGS (6)
  1. ALPRAZOLAM [Suspect]
     Active Substance: ALPRAZOLAM
     Indication: Depression
     Dosage: AS-NEEDED, UNK
     Route: 065
  2. CLONAZEPAM [Suspect]
     Active Substance: CLONAZEPAM
     Indication: Depression
     Dosage: AS-NEEDED, UNK
     Route: 065
  3. DULOXETINE [Suspect]
     Active Substance: DULOXETINE
     Indication: Depression
     Dosage: UNK
     Route: 065
  4. ACETAMINOPHEN\OXYCODONE HYDROCHLORIDE [Suspect]
     Active Substance: ACETAMINOPHEN\OXYCODONE HYDROCHLORIDE
     Indication: Depression
     Dosage: UNK
     Route: 065
  5. PROPRANOLOL [Suspect]
     Active Substance: PROPRANOLOL HYDROCHLORIDE
     Indication: Depression
     Dosage: AS-NEEDED, UNK
     Route: 065
  6. ZOLPIDEM [Suspect]
     Active Substance: ZOLPIDEM TARTRATE
     Indication: Depression
     Dosage: UNK
     Route: 065

REACTIONS (2)
  - Partial seizures [Recovered/Resolved]
  - Aphasia [Unknown]
